FAERS Safety Report 4576837-5 (Version None)
Quarter: 2005Q1

REPORT INFORMATION
  Report Type: 
  Country: None (occurrence: None)
  Receive Date: 20050210
  Receipt Date: 20050131
  Transmission Date: 20050727
  Serious: Yes (Hospitalization)
  Sender: FDA-Public Use
  Company Number: PHRM2005FR00675

PATIENT
  Age: 62 Year
  Sex: Female
  Weight: 47 kg

DRUGS (6)
  1. ESTRADERM [Suspect]
     Dosage: 25 A?G/DAY FOR 5 DAYS/CYCLE
     Route: 062
     Dates: start: 19920615, end: 20000615
  2. DUPHASTON [Suspect]
     Indication: HORMONE REPLACEMENT THERAPY
     Dosage: 2 DF/DAY FOR 11 DAYS/CYCLE
     Route: 048
     Dates: start: 19920615, end: 20000615
  3. COLPRONE TAB [Suspect]
     Indication: HORMONE REPLACEMENT THERAPY
     Dosage: 2 DF/DAY FOR 11 DAYS/CYCLE
     Route: 048
     Dates: start: 20000615, end: 20030101
  4. COLPRONE TAB [Suspect]
     Dosage: 1 DF, QD
     Route: 048
     Dates: start: 20030101, end: 20040303
  5. OESCLIM [Suspect]
     Indication: HORMONE REPLACEMENT THERAPY
     Dosage: 25 A?G/DAY FOR 5 DAYS/CYCLE
     Route: 062
     Dates: start: 20000615, end: 20030101
  6. OESCLIM [Suspect]
     Dosage: 12.5 A?G/DAY FOR 5 DAYS/CYCLE
     Route: 062
     Dates: start: 20030101, end: 20040303

REACTIONS (7)
  - ADNEXA UTERI MASS [None]
  - BENIGN BREAST NEOPLASM [None]
  - BENIGN TUMOUR EXCISION [None]
  - CERVICAL POLYP [None]
  - ECHOGRAPHY ABNORMAL [None]
  - HYSTERECTOMY [None]
  - OOPHORECTOMY [None]
